FAERS Safety Report 9046531 (Version 1)
Quarter: 2013Q1

REPORT INFORMATION
  Report Type: Spontaneous
  Country: US (occurrence: None)
  Receive Date: 20130128
  Receipt Date: 20130128
  Transmission Date: 20140127
  Serious: Yes (Hospitalization, Other)
  Sender: FDA-Public Use
  Company Number: None

PATIENT
  Sex: Female
  Weight: 10.43 kg

DRUGS (1)
  1. HYLANDS BABY TEETHING TABLETS [Suspect]
     Indication: TEETHING

REACTIONS (9)
  - Febrile convulsion [None]
  - Gastrointestinal pain [None]
  - Constipation [None]
  - Malabsorption [None]
  - Muscular weakness [None]
  - Heart rate increased [None]
  - Apnoea [None]
  - Growth retardation [None]
  - Malaise [None]
